FAERS Safety Report 16126962 (Version 1)
Quarter: 2019Q1

REPORT INFORMATION
  Report Type: Spontaneous
  Country: DE (occurrence: DE)
  Receive Date: 20190328
  Receipt Date: 20190328
  Transmission Date: 20190418
  Serious: Yes (Other)
  Sender: FDA-Public Use
  Company Number: DE-TEVA-2019-DE-1029335

PATIENT
  Age: 43 Year
  Sex: Male
  Weight: 79 kg

DRUGS (2)
  1. TERBINAFINE. [Interacting]
     Active Substance: TERBINAFINE
     Indication: ONYCHOMYCOSIS
     Dosage: NOT KNOWN
     Route: 048
     Dates: start: 20190225
  2. LISINOPRIL. [Suspect]
     Active Substance: LISINOPRIL
     Indication: HYPERTENSION
     Dates: start: 2012

REACTIONS (5)
  - Hypertensive crisis [Recovered/Resolved]
  - Restlessness [Recovered/Resolved]
  - Nausea [Recovered/Resolved]
  - Drug interaction [Unknown]
  - Decreased appetite [Recovered/Resolved]

NARRATIVE: CASE EVENT DATE: 20190309
